FAERS Safety Report 8315896-0 (Version None)
Quarter: 2012Q2

REPORT INFORMATION
  Report Type: 
  Country: None (occurrence: None)
  Receive Date: 20120427
  Receipt Date: 20120416
  Transmission Date: 20120825
  Serious: Yes (Death, Other)
  Sender: FDA-Public Use
  Company Number: YE-GE HEALTHCARE MEDICAL DIAGNOSTICS-OMPQ-NO-1204S-0457

PATIENT
  Sex: Female

DRUGS (1)
  1. OMNIPAQUE 140 [Suspect]
     Indication: PRODUCT USED FOR UNKNOWN INDICATION
     Route: 050

REACTIONS (4)
  - PYREXIA [None]
  - HEADACHE [None]
  - HYPERSENSITIVITY [None]
  - DEATH [None]
